FAERS Safety Report 9430192 (Version 2)
Quarter: 2013Q3

REPORT INFORMATION
  Report Type: Spontaneous
  Country: US (occurrence: US)
  Receive Date: 20130730
  Receipt Date: 20130731
  Transmission Date: 20140515
  Serious: Yes (Hospitalization)
  Sender: FDA-Public Use
  Company Number: US-BAXTER-2013BAX028650

PATIENT
  Age: 62 Year
  Sex: Male

DRUGS (2)
  1. DIANEAL PD2 [Suspect]
     Indication: PERITONEAL DIALYSIS
     Dosage: 10,000
     Route: 033
     Dates: start: 201207, end: 201307
  2. DIANEAL PD2 [Suspect]
     Indication: PERITONEAL DIALYSIS
     Dosage: 10,000
     Route: 033
     Dates: start: 201207, end: 201307

REACTIONS (3)
  - Pleuroperitoneal communication [Recovering/Resolving]
  - Ultrafiltration failure [Recovering/Resolving]
  - Decreased appetite [Unknown]
